FAERS Safety Report 18748840 (Version 1)
Quarter: 2021Q1

REPORT INFORMATION
  Report Type: Spontaneous
  Country: FR (occurrence: FR)
  Receive Date: 20210116
  Receipt Date: 20210116
  Transmission Date: 20210419
  Serious: Yes (Hospitalization)
  Sender: FDA-Public Use
  Company Number: FR-ACCORD-214694

PATIENT
  Age: 72 Year
  Sex: Male

DRUGS (2)
  1. KARDEGIC [Interacting]
     Active Substance: ASPIRIN DL-LYSINE
     Indication: THROMBOSIS PROPHYLAXIS
     Dosage: STRENGTH:75 MG
     Route: 048
  2. CLOPIDOGREL [Suspect]
     Active Substance: CLOPIDOGREL BISULFATE
     Indication: THROMBOSIS PROPHYLAXIS
     Route: 048
     Dates: end: 20201219

REACTIONS (2)
  - Drug interaction [Unknown]
  - Rectal haemorrhage [Recovered/Resolved]

NARRATIVE: CASE EVENT DATE: 20201218
